FAERS Safety Report 20364906 (Version 3)
Quarter: 2025Q2

REPORT INFORMATION
  Report Type: Report from Study
  Country: US (occurrence: US)
  Receive Date: 20220122
  Receipt Date: 20250526
  Transmission Date: 20250716
  Serious: No
  Sender: TAKEDA
  Company Number: US-TAKEDA-2022TUS003990

PATIENT
  Sex: Male

DRUGS (2)
  1. IDURSULFASE [Suspect]
     Active Substance: IDURSULFASE
     Indication: Mucopolysaccharidosis II
     Dosage: 4 DOSAGE FORM, 1/WEEK
     Dates: start: 20070430
  2. IDURSULFASE [Suspect]
     Active Substance: IDURSULFASE
     Dosage: UNK, 1/WEEK

REACTIONS (4)
  - Illness [Unknown]
  - Feeding disorder [Unknown]
  - Insurance issue [Unknown]
  - Product use issue [Unknown]
